FAERS Safety Report 9773939 (Version 1)
Quarter: 2013Q4

REPORT INFORMATION
  Report Type: Report from Study
  Country: US (occurrence: US)
  Receive Date: 20131220
  Receipt Date: 20131220
  Transmission Date: 20140711
  Serious: No
  Sender: FDA-Public Use
  Company Number: US-009507513-1312USA002016

PATIENT
  Sex: Female

DRUGS (1)
  1. ETONOGESTREL IMPLANT- IMPLANON NEXT [Suspect]
     Dosage: 68 MG
     Dates: start: 20131030

REACTIONS (6)
  - Device difficult to use [Unknown]
  - Product quality issue [Unknown]
  - Device deployment issue [Unknown]
  - Device dislocation [Unknown]
  - Device difficult to use [Unknown]
  - Device expulsion [Unknown]
